FAERS Safety Report 9744281 (Version 2)
Quarter: 2014Q1

REPORT INFORMATION
  Report Type: Spontaneous
  Country: US (occurrence: US)
  Receive Date: 20131210
  Receipt Date: 20140124
  Transmission Date: 20141002
  Serious: Yes (Hospitalization, Other)
  Sender: FDA-Public Use
  Company Number: US-BAYER-2013-150581

PATIENT
  Age: 28 Year
  Sex: Female
  Weight: 81.63 kg

DRUGS (6)
  1. YAZ [Suspect]
     Indication: ACNE
     Dosage: UNK
     Dates: start: 20081005, end: 200901
  2. YAZ [Suspect]
     Indication: CONTRACEPTION
  3. YAZ [Suspect]
     Indication: CONTRACEPTION
  4. YAZ [Suspect]
     Indication: PREMENSTRUAL SYNDROME
  5. KEFLEX [Concomitant]
  6. TORADOL [Concomitant]

REACTIONS (5)
  - Thrombosis [None]
  - Pain [None]
  - Mobility decreased [None]
  - Pain [None]
  - Thrombophlebitis superficial [None]
